FAERS Safety Report 5840133-6 (Version None)
Quarter: 2008Q3

REPORT INFORMATION
  Report Type: 
  Country: None (occurrence: None)
  Receive Date: 20080811
  Receipt Date: 20080807
  Transmission Date: 20090109
  Serious: Yes (Death, Life-Threatening)
  Sender: FDA-Public Use
  Company Number: JP-WYE-H04275208

PATIENT
  Sex: Male
  Weight: 65 kg

DRUGS (10)
  1. ANCARON [Suspect]
     Indication: VENTRICULAR TACHYCARDIA
     Route: 042
     Dates: start: 20080108, end: 20080108
  2. ANCARON [Suspect]
     Route: 042
     Dates: start: 20080108, end: 20080108
  3. ANCARON [Suspect]
     Route: 042
     Dates: start: 20080108, end: 20080108
  4. INOVAN [Concomitant]
     Dosage: 1.5 TO 15 MCG/KG/MIN
     Route: 042
     Dates: start: 20071206
  5. HEPARIN SODIUM [Concomitant]
     Indication: ANTICOAGULANT THERAPY
     Dosage: DOSE UNKNOWN
     Route: 042
     Dates: start: 20071206
  6. NORADRENALINE [Concomitant]
     Dosage: 0.07 TO 0.3 MCG/KG/MIN
     Route: 042
     Dates: start: 20080108
  7. HANP [Concomitant]
     Dosage: 0.006 TO 0.02 MCG/KG/MIN
     Route: 042
     Dates: start: 20071210
  8. SHINBIT [Concomitant]
     Indication: ATRIAL TACHYCARDIA
     Dosage: 10 MG, 5 MINS.
     Route: 042
     Dates: start: 20071230, end: 20071230
  9. SHINBIT [Concomitant]
     Route: 042
     Dates: start: 20071230, end: 20080107
  10. DOBUTREX [Concomitant]
     Dosage: 1.5 TO 15 MCG/KG/MIN
     Route: 042
     Dates: start: 20071206

REACTIONS (2)
  - BLOOD PRESSURE DECREASED [None]
  - SEPTIC SHOCK [None]
